FAERS Safety Report 9102382 (Version 1)
Quarter: 2013Q1

REPORT INFORMATION
  Report Type: Spontaneous
  Country: US (occurrence: US)
  Receive Date: 20130218
  Receipt Date: 20130218
  Transmission Date: 20140127
  Serious: No
  Sender: FDA-Public Use
  Company Number: US-BIOGENIDEC-2013BI012879

PATIENT
  Age: 60 Year
  Sex: Female

DRUGS (4)
  1. TYSABRI [Suspect]
     Indication: MULTIPLE SCLEROSIS
     Route: 042
  2. INTERFERON BETA-1B [Concomitant]
  3. FINGOLIMOD [Concomitant]
  4. AZATHIOPRINE SODIUM [Concomitant]

REACTIONS (2)
  - Vision blurred [Unknown]
  - Multiple sclerosis [Unknown]
